FAERS Safety Report 17297690 (Version 4)
Quarter: 2020Q3

REPORT INFORMATION
  Report Type: Spontaneous
  Country: JP (occurrence: JP)
  Receive Date: 20200122
  Receipt Date: 20200703
  Transmission Date: 20201102
  Serious: Yes (Other)
  Sender: FDA-Public Use
  Company Number: JP-ROCHE-2528280

PATIENT
  Age: 9 Week
  Sex: Female

DRUGS (4)
  1. LUCENTIS [Suspect]
     Active Substance: RANIBIZUMAB
     Indication: RETINOPATHY OF PREMATURITY
     Dosage: 0.2 MG, BOTH EYES
     Route: 031
     Dates: start: 20191223, end: 20191223
  2. FERRIC PYROPHOSPHATE [Concomitant]
     Active Substance: FERRIC PYROPHOSPHATE
     Indication: IRON DEFICIENCY
     Dosage: 0.5 ML, DRUG REPORTED AS INCREMIN
     Route: 048
     Dates: start: 20191211
  3. ALFAROL [Concomitant]
     Active Substance: ALFACALCIDOL
     Indication: CALCIUM METABOLISM DISORDER
     Dosage: 0.04 UG
     Route: 048
     Dates: start: 20191211
  4. CALCIUM PHOSPHATE DIBASIC [Concomitant]
     Indication: CALCIUM METABOLISM DISORDER
     Dosage: 1.2 G
     Route: 065
     Dates: start: 20191211

REACTIONS (2)
  - Corneal opacity [Recovered/Resolved]
  - Intraocular pressure increased [Recovered/Resolved]

NARRATIVE: CASE EVENT DATE: 20191224
